FAERS Safety Report 18301411 (Version 1)
Quarter: 2020Q3

REPORT INFORMATION
  Report Type: Spontaneous
  Country: US (occurrence: US)
  Receive Date: 20200923
  Receipt Date: 20200923
  Transmission Date: 20201103
  Serious: No
  Sender: FDA-Public Use
  Company Number: US-RECKITT BENCKISER HEALTHCARE INT LIMITED-RB-90810-2019

PATIENT
  Age: 32 Year
  Sex: Female

DRUGS (1)
  1. MUCINEX [Suspect]
     Active Substance: GUAIFENESIN
     Indication: PRODUCT USED FOR UNKNOWN INDICATION
     Dosage: 600 MILLIGRAM, QD
     Route: 065
     Dates: start: 20190928

REACTIONS (4)
  - Anxiety [Recovering/Resolving]
  - Pharyngeal swelling [Recovering/Resolving]
  - Underdose [Recovering/Resolving]
  - Choking [Recovering/Resolving]

NARRATIVE: CASE EVENT DATE: 20190929
